FAERS Safety Report 20993250 (Version 1)
Quarter: 2022Q2

REPORT INFORMATION
  Report Type: Report from Study
  Country: BR (occurrence: BR)
  Receive Date: 20220622
  Receipt Date: 20220622
  Transmission Date: 20220721
  Serious: Yes (Other)
  Sender: FDA-Public Use
  Company Number: BR-JNJFOC-20220428000

PATIENT
  Age: 67 Year
  Sex: Male
  Weight: 48 kg

DRUGS (7)
  1. INFLIXIMAB [Suspect]
     Active Substance: INFLIXIMAB
     Indication: Crohn^s disease
     Dosage: DOSAGE INTERVAL WAS GIVEN AS 0, 2, 6 AND EVERY 4 WEEKS. THE LAST INFUSION WAS ON THE 18/MAY AND THE
     Route: 041
     Dates: start: 20150131
  2. INFLIXIMAB [Suspect]
     Active Substance: INFLIXIMAB
     Route: 041
     Dates: start: 20220111
  3. INFLIXIMAB [Suspect]
     Active Substance: INFLIXIMAB
     Route: 041
     Dates: start: 20220518
  4. INFLIXIMAB [Suspect]
     Active Substance: INFLIXIMAB
     Indication: Crohn^s disease
     Dosage: 10MG/ML APPLY 240MG INTRAVENOUSLY (3 VIALS) DILUTED IN 250ML OF SALINE SOLUTION AND RUN IN 2 HOURS.
     Route: 041
  5. INFLIXIMAB [Suspect]
     Active Substance: INFLIXIMAB
     Dosage: 10 MG/ML APPLY 240MG (3 AMPOULES) DILUTED TO 250ML OF 0.9% SF AND RUN IN 2 HOURS. 4/4 MAINTENANCE WE
  6. AZATHIOPRINE [Concomitant]
     Active Substance: AZATHIOPRINE
  7. AZATHIOPRINE [Concomitant]
     Active Substance: AZATHIOPRINE

REACTIONS (7)
  - Crohn^s disease [Unknown]
  - Drug level below therapeutic [Unknown]
  - Antibody test abnormal [Unknown]
  - Herpes virus infection [Unknown]
  - Intercepted product prescribing error [Unknown]
  - Inappropriate schedule of product administration [Unknown]
  - Off label use [Unknown]

NARRATIVE: CASE EVENT DATE: 20150204
